FAERS Safety Report 4880211-1 (Version None)
Quarter: 2005Q4

REPORT INFORMATION
  Report Type: 
  Country: None (occurrence: None)
  Receive Date: 20051223
  Receipt Date: 20051021
  Transmission Date: 20060501
  Serious: No
  Sender: FDA-Public Use
  Company Number: 05P-163-0314709-00

PATIENT
  Age: 60 Year
  Sex: Female

DRUGS (6)
  1. HUMIRA [Suspect]
     Indication: ARTHRITIS REACTIVE
     Dosage: 40 MG, 1 IN 2 WK, SUBCUTANEOUS
     Route: 058
     Dates: start: 20050621
  2. METHOTREXATE [Concomitant]
  3. FOLIC ACID [Concomitant]
  4. METOPROLOL SUCCINATE [Concomitant]
  5. SULFASALAZINE [Concomitant]
  6. SULINDAC [Concomitant]

REACTIONS (3)
  - BLOOD PRESSURE INCREASED [None]
  - BREAST PAIN [None]
  - HOT FLUSH [None]
